FAERS Safety Report 10504026 (Version 1)
Quarter: 2014Q4

REPORT INFORMATION
  Report Type: Spontaneous
  Country: US (occurrence: US)
  Receive Date: 20141008
  Receipt Date: 20141008
  Transmission Date: 20150528
  Serious: No
  Sender: FDA-Public Use
  Company Number: US-BEH-2013037100

PATIENT
  Sex: Male
  Weight: 76 kg

DRUGS (22)
  1. DIGOXIN. [Concomitant]
     Active Substance: DIGOXIN
  2. FUROSEMIDE. [Concomitant]
     Active Substance: FUROSEMIDE
  3. ACETAMINOPHEN. [Concomitant]
     Active Substance: ACETAMINOPHEN
  4. PRIVIGEN [Suspect]
     Active Substance: HUMAN IMMUNOGLOBULIN G
     Indication: POLYNEUROPATHY
     Route: 042
  5. HUMALOG [Concomitant]
     Active Substance: INSULIN LISPRO
  6. ASPIRIN. [Concomitant]
     Active Substance: ASPIRIN
  7. DIPHENHYDRAMINE [Concomitant]
     Active Substance: DIPHENHYDRAMINE
     Indication: PREMEDICATION
  8. POTASSIUM [Concomitant]
     Active Substance: POTASSIUM
  9. LANTUS [Concomitant]
     Active Substance: INSULIN GLARGINE
  10. ARICEPT [Concomitant]
     Active Substance: DONEPEZIL HYDROCHLORIDE
  11. CARVEDILOL. [Concomitant]
     Active Substance: CARVEDILOL
  12. AMIODARONE [Concomitant]
     Active Substance: AMIODARONE
  13. AVODART [Concomitant]
     Active Substance: DUTASTERIDE
  14. SPIRONOLACTONE. [Concomitant]
     Active Substance: SPIRONOLACTONE
  15. DONEPEZIL [Concomitant]
     Active Substance: DONEPEZIL
  16. TAMSULOSIN [Concomitant]
     Active Substance: TAMSULOSIN
  17. PRIMIDONE. [Concomitant]
     Active Substance: PRIMIDONE
  18. SODIUM CHLORIDE. [Concomitant]
     Active Substance: SODIUM CHLORIDE
     Indication: PREMEDICATION
  19. EPIPEN [Concomitant]
     Active Substance: EPINEPHRINE
     Indication: PREMEDICATION
  20. LIPITOR [Concomitant]
     Active Substance: ATORVASTATIN CALCIUM
  21. GABAPENTIN. [Concomitant]
     Active Substance: GABAPENTIN
  22. ROPINIROLE. [Concomitant]
     Active Substance: ROPINIROLE

REACTIONS (1)
  - Diarrhoea [Unknown]
